FAERS Safety Report 10954773 (Version 2)
Quarter: 2015Q2

REPORT INFORMATION
  Report Type: Spontaneous
  Country: CA (occurrence: CA)
  Receive Date: 20150325
  Receipt Date: 20150508
  Transmission Date: 20150821
  Serious: Yes (Hospitalization, Other)
  Sender: FDA-Public Use
  Company Number: CA-JAZZ-2015-CA-004292

PATIENT
  Age: 78 Year
  Sex: Male

DRUGS (4)
  1. XYREM [Suspect]
     Active Substance: SODIUM OXYBATE
     Dosage: 3 G, UNK
     Route: 048
     Dates: start: 20141028
  2. XYREM [Suspect]
     Active Substance: SODIUM OXYBATE
     Dosage: 3.75 G, BID
     Route: 048
     Dates: start: 20081015
  3. XYREM [Suspect]
     Active Substance: SODIUM OXYBATE
     Dosage: 3 G, BID
     Route: 048
     Dates: start: 20150310
  4. XYREM [Suspect]
     Active Substance: SODIUM OXYBATE
     Indication: NARCOLEPSY
     Dosage: 2.25 G, BID
     Route: 048
     Dates: start: 20080527

REACTIONS (8)
  - Injury [Unknown]
  - Fall [Unknown]
  - Cardiac pacemaker insertion [Unknown]
  - Cataplexy [Unknown]
  - Drug ineffective [Unknown]
  - Somnambulism [Unknown]
  - Insomnia [Unknown]
  - Medication error [Unknown]

NARRATIVE: CASE EVENT DATE: 201312
